FAERS Safety Report 25996620 (Version 2)
Quarter: 2025Q4

REPORT INFORMATION
  Report Type: Other
  Country: JP (occurrence: JP)
  Receive Date: 20251104
  Receipt Date: 20251202
  Transmission Date: 20260118
  Serious: Yes (Death)
  Sender: APPCO PHARMA LLC
  Company Number: JP-Appco Pharma LLC-2187874

PATIENT
  Age: 24 Year
  Sex: Female

DRUGS (9)
  1. SERTRALINE [Suspect]
     Active Substance: SERTRALINE HYDROCHLORIDE
     Indication: Product used for unknown indication
  2. 7-AMINOFLUNITRAZEPAM [Suspect]
     Active Substance: 7-AMINOFLUNITRAZEPAM
  3. SALICYLIC ACID [Suspect]
     Active Substance: SALICYLIC ACID
  4. QUETIAPINE [Suspect]
     Active Substance: QUETIAPINE
  5. MIRTAZAPINE [Suspect]
     Active Substance: MIRTAZAPINE
  6. LORMETAZEPAM [Suspect]
     Active Substance: LORMETAZEPAM
  7. DIPHENHYDRAMINE [Suspect]
     Active Substance: DIPHENHYDRAMINE
  8. CHLORPHENIRAMINE [Suspect]
     Active Substance: CHLORPHENIRAMINE
  9. CAFFEINE [Suspect]
     Active Substance: CAFFEINE

REACTIONS (2)
  - Overdose [Fatal]
  - Toxicity to various agents [Fatal]
